FAERS Safety Report 9814789 (Version 1)
Quarter: 2014Q1

REPORT INFORMATION
  Report Type: Spontaneous
  Country: GB (occurrence: GB)
  Receive Date: 20140113
  Receipt Date: 20140113
  Transmission Date: 20141002
  Serious: Yes (Death, Hospitalization)
  Sender: FDA-Public Use
  Company Number: PHHY2014GB003245

PATIENT
  Age: 80 Year
  Sex: Male

DRUGS (4)
  1. HEPARIN [Suspect]
     Indication: ANTICOAGULANT THERAPY
  2. DALTEPARIN [Concomitant]
     Indication: DEEP VEIN THROMBOSIS
  3. METHYLPREDNISOLONE [Concomitant]
     Indication: IMMUNOSUPPRESSION
  4. CYCLOPHOSPHAMIDE [Concomitant]
     Indication: IMMUNOSUPPRESSION

REACTIONS (3)
  - Respiratory failure [Fatal]
  - Circulatory collapse [Fatal]
  - Heparin-induced thrombocytopenia [Unknown]
